FAERS Safety Report 16993462 (Version 1)
Quarter: 2019Q4

REPORT INFORMATION
  Report Type: Spontaneous
  Country: US (occurrence: US)
  Receive Date: 20191105
  Receipt Date: 20191105
  Transmission Date: 20200122
  Serious: Yes (Hospitalization, Other)
  Sender: FDA-Public Use
  Company Number: US-TEVA-2019-US-1130651

PATIENT
  Sex: Female

DRUGS (1)
  1. COPAXONE [Suspect]
     Active Substance: GLATIRAMER ACETATE
     Dosage: FORM STRENGTH: UNKNOWN
     Route: 065

REACTIONS (8)
  - Limb discomfort [Unknown]
  - Walking aid user [Unknown]
  - Oral herpes [Unknown]
  - Peripheral coldness [Unknown]
  - Gait disturbance [Unknown]
  - Ligament sprain [Unknown]
  - Fall [Unknown]
  - Multiple sclerosis [Unknown]
